FAERS Safety Report 10048485 (Version 3)
Quarter: 2014Q3

REPORT INFORMATION
  Report Type: Report from Study
  Country: DE (occurrence: DE)
  Receive Date: 20140331
  Receipt Date: 20140818
  Transmission Date: 20150326
  Serious: Yes (Death, Hospitalization)
  Sender: FDA-Public Use
  Company Number: DE-BRISTOL-MYERS SQUIBB COMPANY-20573986

PATIENT
  Age: 54 Year
  Sex: Female

DRUGS (15)
  1. NOVAMINSULFON [Concomitant]
     Active Substance: METAMIZOLE
  2. ACTRAPID [Concomitant]
     Active Substance: INSULIN HUMAN
  3. FUROSEMIDE. [Concomitant]
     Active Substance: FUROSEMIDE
  4. SIMVASTATIN. [Concomitant]
     Active Substance: SIMVASTATIN
  5. JANUVIA [Concomitant]
     Active Substance: SITAGLIPTIN PHOSPHATE
  6. OXYCODONE [Concomitant]
     Active Substance: OXYCODONE
  7. RAMIPRIL. [Concomitant]
     Active Substance: RAMIPRIL
  8. LANTUS [Concomitant]
     Active Substance: INSULIN GLARGINE
  9. COLECALCIFEROL [Concomitant]
     Active Substance: CHOLECALCIFEROL
  10. ABATACEPT SUBQ INJECTION 125MG/ML [Suspect]
     Active Substance: ABATACEPT
     Dates: start: 20130701, end: 201403
  11. MTX [Suspect]
     Active Substance: METHOTREXATE SODIUM
     Dates: start: 2013
  12. HUMIRA [Suspect]
     Active Substance: ADALIMUMAB
     Indication: RHEUMATOID ARTHRITIS
     Dates: start: 201209, end: 201304
  13. PANTOPRAZOLE [Concomitant]
     Active Substance: PANTOPRAZOLE SODIUM
  14. METOPROLOL [Concomitant]
     Active Substance: METOPROLOL
  15. PREDNISOLONE. [Concomitant]
     Active Substance: PREDNISOLONE

REACTIONS (4)
  - Septic shock [Fatal]
  - Erysipelas [Fatal]
  - Pain in extremity [Fatal]
  - Multi-organ failure [Fatal]

NARRATIVE: CASE EVENT DATE: 20140228
